FAERS Safety Report 9721957 (Version 1)
Quarter: 2013Q4

REPORT INFORMATION
  Report Type: Spontaneous
  Country: PL (occurrence: PL)
  Receive Date: 20131202
  Receipt Date: 20131202
  Transmission Date: 20140711
  Serious: Yes (Hospitalization)
  Sender: FDA-Public Use
  Company Number: PL-PFIZER INC-2013330643

PATIENT
  Age: 41 Year
  Sex: Female

DRUGS (5)
  1. CLINDAMYCIN PALMITATE HCL [Suspect]
     Indication: ERYSIPELAS
  2. PSORALEN [Suspect]
     Indication: RASH ERYTHEMATOUS
  3. PSORALEN [Suspect]
     Indication: PRURITUS
  4. ACYCLOVIR [Suspect]
     Indication: ECZEMA
  5. CEFUROXIME [Suspect]
     Indication: BACTERIAL INFECTION

REACTIONS (2)
  - Drug ineffective [Recovered/Resolved]
  - Lymphadenopathy [Recovered/Resolved]
